FAERS Safety Report 4528253-X (Version None)
Quarter: 2005Q1

REPORT INFORMATION
  Report Type: 
  Country: None (occurrence: None)
  Receive Date: 20041202
  Receipt Date: 20040922
  Transmission Date: 20050727
  Serious: Yes (Other)
  Sender: FDA-Public Use
  Company Number: 200418303BWH

PATIENT
  Sex: Male

DRUGS (3)
  1. LEVITRA [Suspect]
     Indication: ERECTILE DYSFUNCTION
     Dosage: 20 MG, QW, ORAL
     Route: 048
     Dates: start: 20040518
  2. VIAGRA [Concomitant]
  3. CIALIS [Concomitant]

REACTIONS (5)
  - ERECTILE DYSFUNCTION [None]
  - FLUSHING [None]
  - PENILE PAIN [None]
  - SYNCOPE [None]
  - TESTICULAR PAIN [None]
